FAERS Safety Report 23617516 (Version 2)
Quarter: 2024Q1

REPORT INFORMATION
  Report Type: Spontaneous
  Country: IN (occurrence: IN)
  Receive Date: 20240311
  Receipt Date: 20240319
  Transmission Date: 20240409
  Serious: Yes (Hospitalization, Other)
  Sender: FDA-Public Use
  Company Number: IN-CIPLA LTD.-2024IN02425

PATIENT

DRUGS (5)
  1. BUDESONIDE [Suspect]
     Active Substance: BUDESONIDE
     Indication: Cough
     Dosage: UNK (SOMETIMES HALF AND SOMETIMES 1 RESPULE, OCCASIONALLY)
     Dates: start: 2023
  2. IPRATROPIUM BROMIDE\LEVALBUTEROL SULFATE [Suspect]
     Active Substance: IPRATROPIUM BROMIDE\LEVALBUTEROL SULFATE
     Indication: Cough
     Dosage: UNK (SOMETIMES HALF AND SOMETIMES 1 RESPULE, OCCASIONALLY)
     Dates: start: 2023
  3. IPRATROPIUM BROMIDE\LEVALBUTEROL SULFATE [Suspect]
     Active Substance: IPRATROPIUM BROMIDE\LEVALBUTEROL SULFATE
     Indication: Product used for unknown indication
     Dosage: UNK (LAST 5-10 YEARS)
     Route: 065
  4. BUDESONIDE\FORMOTEROL FUMARATE [Suspect]
     Active Substance: BUDESONIDE\FORMOTEROL FUMARATE
     Indication: Asthma
     Dosage: UNK (LAST 5-10 YEARS)
     Route: 065
  5. ALBUTEROL [Suspect]
     Active Substance: ALBUTEROL
     Indication: Asthma
     Dosage: UNK (50 YEARS AGO)
     Route: 065
     Dates: start: 1974

REACTIONS (12)
  - Asphyxia [Recovered/Resolved]
  - Choking [Not Recovered/Not Resolved]
  - Cough [Not Recovered/Not Resolved]
  - Drug ineffective [Not Recovered/Not Resolved]
  - Asthma [Not Recovered/Not Resolved]
  - Sneezing [Not Recovered/Not Resolved]
  - Off label use [Unknown]
  - Sensory loss [Recovered/Resolved]
  - Rhinorrhoea [Not Recovered/Not Resolved]
  - Pruritus [Not Recovered/Not Resolved]
  - Productive cough [Not Recovered/Not Resolved]
  - Nasal obstruction [Unknown]

NARRATIVE: CASE EVENT DATE: 20230101
